FAERS Safety Report 13177905 (Version 1)
Quarter: 2017Q1

REPORT INFORMATION
  Report Type: Spontaneous
  Country: US (occurrence: US)
  Receive Date: 20170202
  Receipt Date: 20170202
  Transmission Date: 20170428
  Serious: No
  Sender: FDA-Public Use
  Company Number: US-BAUSCH-BL-2016-013881

PATIENT
  Sex: 0

DRUGS (1)
  1. MIGRANAL [Suspect]
     Active Substance: DIHYDROERGOTAMINE MESYLATE
     Indication: MIGRAINE
     Route: 065

REACTIONS (2)
  - Drug ineffective [Unknown]
  - Expired product administered [Unknown]
